FAERS Safety Report 7669122-6 (Version None)
Quarter: 2011Q3

REPORT INFORMATION
  Report Type: 
  Country: None (occurrence: None)
  Receive Date: 20110808
  Receipt Date: 20110801
  Transmission Date: 20111222
  Serious: Yes (Life-Threatening, Hospitalization)
  Sender: FDA-Public Use
  Company Number: JP-JNJFOC-20110709073

PATIENT
  Age: 67 Year
  Sex: Female
  Weight: 50 kg

DRUGS (6)
  1. MAGNESIUM OXIDE [Concomitant]
     Route: 048
  2. GRANISETRON HYDROCHLORIDE [Concomitant]
     Route: 042
     Dates: start: 20110715, end: 20110715
  3. CARBOPLATIN [Concomitant]
     Indication: OVARIAN CANCER RECURRENT
     Route: 042
     Dates: start: 20110715, end: 20110715
  4. SEISHOKU [Concomitant]
     Route: 042
  5. DOXORUBICIN HCL [Suspect]
     Indication: OVARIAN CANCER RECURRENT
     Route: 042
     Dates: start: 20110715, end: 20110715
  6. LACTATED RINGER'S [Concomitant]
     Route: 042

REACTIONS (2)
  - INFUSION RELATED REACTION [None]
  - ANAPHYLACTIC REACTION [None]
